FAERS Safety Report 4586779-7 (Version None)
Quarter: 2005Q1

REPORT INFORMATION
  Report Type: 
  Country: None (occurrence: None)
  Receive Date: 20050214
  Receipt Date: 20050203
  Transmission Date: 20050727
  Serious: Yes (Death)
  Sender: FDA-Public Use
  Company Number: RU-2005-001487

PATIENT
  Age: 19 Year
  Sex: Female

DRUGS (1)
  1. YARINA (DROSPIRENONE, ETHINYLESTRADIOL) FILM TABLET [Suspect]
     Dosage: 1 TAB(S), 1X/DAY, ORAL
     Route: 048

REACTIONS (1)
  - CARDIAC FAILURE ACUTE [None]
